FAERS Safety Report 6511854-7 (Version None)
Quarter: 2009Q4

REPORT INFORMATION
  Report Type: 
  Country: None (occurrence: None)
  Receive Date: 20091222
  Receipt Date: 20091214
  Transmission Date: 20100525
  Serious: Yes (Hospitalization)
  Sender: FDA-Public Use
  Company Number: BE-ABBOTT-09P-013-0614272-00

PATIENT
  Sex: Female

DRUGS (6)
  1. HUMIRA [Suspect]
     Indication: RHEUMATOID ARTHRITIS
     Dates: start: 20090803
  2. HUMIRA [Suspect]
  3. LEDERTREXATE [Concomitant]
     Indication: ARTHRITIS
     Route: 030
  4. FOLIC ACID [Concomitant]
     Indication: ARTHRITIS
  5. CELEBREX [Concomitant]
     Indication: ARTHRITIS
  6. URFADYN PL [Concomitant]
     Indication: DRUG USE FOR UNKNOWN INDICATION

REACTIONS (2)
  - NEPHROLITHIASIS [None]
  - RENAL DISORDER [None]
